FAERS Safety Report 8952998 (Version 3)
Quarter: 2014Q3

REPORT INFORMATION
  Report Type: Report from Study
  Country: BD (occurrence: BD)
  Receive Date: 20121205
  Receipt Date: 20140821
  Transmission Date: 20150326
  Serious: Yes (Death)
  Sender: FDA-Public Use
  Company Number: PHHY2012BD112072

PATIENT
  Age: 50 Year
  Sex: Male

DRUGS (2)
  1. ACLASTA [Suspect]
     Active Substance: ZOLEDRONIC ACID
     Indication: OSTEOPOROSIS
     Dosage: UNK UKN, ONCE YEARLY
     Route: 042
     Dates: start: 20120118
  2. ACLASTA [Suspect]
     Active Substance: ZOLEDRONIC ACID
     Indication: ARTHRALGIA

REACTIONS (1)
  - Cerebrovascular accident [Fatal]
